FAERS Safety Report 15578138 (Version 1)
Quarter: 2018Q4

REPORT INFORMATION
  Report Type: Other
  Country: ES (occurrence: ES)
  Receive Date: 20181102
  Receipt Date: 20181102
  Transmission Date: 20190205
  Serious: Yes (Life-Threatening, Hospitalization, Other)
  Sender: FDA-Public Use
  Company Number: ES-APOTEX-2018AP023534

PATIENT
  Age: 35 Year
  Sex: Female

DRUGS (6)
  1. CLONAZEPAM. [Concomitant]
     Active Substance: CLONAZEPAM
     Indication: PERSONALITY DISORDER
     Dosage: 2 MG, QD
     Route: 048
     Dates: start: 201607, end: 20170305
  2. OXCARBAZEPINE. [Interacting]
     Active Substance: OXCARBAZEPINE
     Indication: INTENTIONAL OVERDOSE
     Dosage: IN TOTAL 1 TOTAL
     Route: 048
     Dates: start: 20170306, end: 20170306
  3. CLONAZEPAM. [Interacting]
     Active Substance: CLONAZEPAM
     Indication: INTENTIONAL OVERDOSE
     Dosage: IN TOTAL ONE TOTAL
     Route: 048
     Dates: start: 20170306, end: 20170306
  4. PAROXETINE. [Suspect]
     Active Substance: PAROXETINE
     Indication: INTENTIONAL OVERDOSE
     Dosage: IN TOTAL ONE TOTAL
     Route: 048
     Dates: start: 20170306, end: 20170306
  5. OLANZAPINE. [Interacting]
     Active Substance: OLANZAPINE
     Indication: INTENTIONAL OVERDOSE
     Dosage: IN TOTAL ONE TOTAL
     Route: 048
     Dates: start: 20170306, end: 20170306
  6. PAROXETINE HYDROCHLORIDE. [Concomitant]
     Active Substance: PAROXETINE HYDROCHLORIDE
     Indication: PERSONALITY DISORDER
     Dosage: 20 MG, QD
     Route: 048
     Dates: start: 20151113, end: 20160305

REACTIONS (2)
  - Coma [Recovered/Resolved]
  - Intentional overdose [Recovered/Resolved]

NARRATIVE: CASE EVENT DATE: 20170306
